FAERS Safety Report 6651608-4 (Version None)
Quarter: 2010Q1

REPORT INFORMATION
  Report Type: 
  Country: None (occurrence: None)
  Receive Date: 20100325
  Receipt Date: 20100316
  Transmission Date: 20100710
  Serious: Yes (Other)
  Sender: FDA-Public Use
  Company Number: CA-JNJFOC-20100207510

PATIENT
  Sex: Female
  Weight: 76.3 kg

DRUGS (4)
  1. REMICADE [Suspect]
     Indication: PSORIASIS
     Route: 042
  2. REMICADE [Suspect]
     Dosage: 6TH INFUSION
     Route: 042
  3. REMICADE [Suspect]
     Route: 042
  4. XALATAN [Concomitant]

REACTIONS (2)
  - MULTIPLE SCLEROSIS [None]
  - VISION BLURRED [None]
